FAERS Safety Report 13819328 (Version 1)
Quarter: 2017Q3

REPORT INFORMATION
  Report Type: Spontaneous
  Country: US (occurrence: US)
  Receive Date: 20170731
  Receipt Date: 20170731
  Transmission Date: 20171127
  Serious: Yes (Disabling, Other)
  Sender: FDA-Public Use
  Company Number: None

PATIENT
  Age: 39 Year
  Sex: Female
  Weight: 81 kg

DRUGS (6)
  1. IBUPROFEN. [Concomitant]
     Active Substance: IBUPROFEN
  2. GENERIC CLARITIN [Concomitant]
     Active Substance: LORATADINE
  3. BENADRYL [Concomitant]
     Active Substance: DIPHENHYDRAMINE HYDROCHLORIDE
  4. CLONAZEPAM. [Suspect]
     Active Substance: CLONAZEPAM
     Indication: GENERALISED ANXIETY DISORDER
     Dosage: ?          QUANTITY:1 TABLET(S);?ORAL
     Route: 048
     Dates: start: 20050101, end: 20170731
  5. CLONAZEPAM. [Suspect]
     Active Substance: CLONAZEPAM
     Indication: PANIC ATTACK
     Dosage: ?          QUANTITY:1 TABLET(S);?ORAL
     Route: 048
     Dates: start: 20050101, end: 20170731
  6. CLONAZEPAM. [Suspect]
     Active Substance: CLONAZEPAM
     Indication: SOCIAL ANXIETY DISORDER
     Dosage: ?          QUANTITY:1 TABLET(S);?ORAL
     Route: 048
     Dates: start: 20050101, end: 20170731

REACTIONS (15)
  - Depressed level of consciousness [None]
  - Memory impairment [None]
  - Crying [None]
  - Aggression [None]
  - Somnolence [None]
  - Emotional distress [None]
  - Depression [None]
  - Job dissatisfaction [None]
  - Quality of life decreased [None]
  - Impaired driving ability [None]
  - Anxiety [None]
  - Pregnancy [None]
  - Suicidal ideation [None]
  - Abortion [None]
  - Impaired quality of life [None]

NARRATIVE: CASE EVENT DATE: 20151215
